FAERS Safety Report 13800263 (Version 2)
Quarter: 2017Q4

REPORT INFORMATION
  Report Type: Spontaneous
  Country: US (occurrence: US)
  Receive Date: 20170727
  Receipt Date: 20171006
  Transmission Date: 20180320
  Serious: No
  Sender: FDA-Public Use
  Company Number: US-JNJFOC-20170516921

PATIENT
  Age: 73 Year
  Sex: Female
  Weight: 39.01 kg

DRUGS (15)
  1. POTASSIUM GLUCONATE [Concomitant]
     Active Substance: POTASSIUM GLUCONATE
     Indication: PRODUCT USED FOR UNKNOWN INDICATION
     Route: 065
  2. WOMENS ROGAINE UNSCENTED [Suspect]
     Active Substance: MINOXIDIL
     Indication: ALOPECIA
     Dosage: 1 CAPFUL AMOUNT
     Route: 061
     Dates: start: 201607, end: 20161010
  3. CENTRUM [Concomitant]
     Active Substance: VITAMINS
     Indication: SICKLE CELL ANAEMIA
     Dosage: THERAPY DURATION : 2 YEARS
     Route: 065
  4. GARLIC. [Concomitant]
     Active Substance: GARLIC
     Indication: ASTHENIA
     Route: 065
  5. MAGNESIUM [Concomitant]
     Active Substance: MAGNESIUM
     Indication: ROUTINE HEALTH MAINTENANCE
     Dosage: THERAPY DURATION: 1 YEAR
     Route: 065
  6. VITAMIN C PLUS ROSE HIPS [Concomitant]
     Indication: ROUTINE HEALTH MAINTENANCE
     Route: 065
  7. WOMENS ROGAINE UNSCENTED [Suspect]
     Active Substance: MINOXIDIL
     Route: 061
  8. VIVISCAL [Concomitant]
     Indication: ALOPECIA
     Dosage: THERAPY DURATION: 5 MONTHS
     Route: 065
  9. SELENIUM [Concomitant]
     Active Substance: SELENIUM
     Indication: ASTHENIA
     Dosage: THERPAY DURATION: 1 YEARS
     Route: 065
  10. MAGNESIUM [Concomitant]
     Active Substance: MAGNESIUM
     Indication: SLEEP DISORDER
     Dosage: THERAPY DURATION: 1 YEAR
     Route: 065
  11. HYALURONIC ACID [Concomitant]
     Active Substance: HYALURONIC ACID
     Indication: SKIN DISORDER
     Route: 065
  12. ZINC. [Concomitant]
     Active Substance: ZINC
     Indication: SKIN DISORDER
     Dosage: THERAPY DURATION: 15 YEARS
     Route: 065
  13. VITAMIN B COMPLEX [Concomitant]
     Active Substance: CYANOCOBALAMIN\DEXPANTHENOL\NIACINAMIDE\PYRIDOXINE HYDROCHLORIDE\RIBOFLAVIN 5^-PHOSPHATE SODIUM\THIAMINE HYDROCHLORIDE\VITAMIN B COMPLEX
     Indication: ASTHENIA
     Route: 065
  14. POTASSIUM [Concomitant]
     Active Substance: POTASSIUM
     Indication: BLOOD POTASSIUM DECREASED
     Dosage: THERAPY DURATION: 16 YEARS
     Route: 065
  15. ALIGN [Concomitant]
     Active Substance: BIFIDOBACTERIUM LONGUM SUBSP. INFANTIS
     Indication: ROUTINE HEALTH MAINTENANCE
     Route: 065

REACTIONS (7)
  - Biopsy site unspecified abnormal [Unknown]
  - Product use in unapproved indication [Not Recovered/Not Resolved]
  - Overdose [Not Recovered/Not Resolved]
  - Application site pain [Not Recovered/Not Resolved]
  - Alopecia [Not Recovered/Not Resolved]
  - Off label use [Not Recovered/Not Resolved]
  - Hair growth abnormal [Not Recovered/Not Resolved]

NARRATIVE: CASE EVENT DATE: 20160711
